FAERS Safety Report 19181988 (Version 2)
Quarter: 2021Q4

REPORT INFORMATION
  Report Type: Other
  Country: US (occurrence: None)
  Receive Date: 20210427
  Receipt Date: 20211216
  Transmission Date: 20220303
  Serious: Yes (Other)
  Sender: FDA-Public Use
  Company Number: US-ROCHE-2816269

PATIENT
  Age: 60 Year
  Sex: Female
  Weight: 68.49 kg

DRUGS (9)
  1. OCREVUS [Suspect]
     Active Substance: OCRELIZUMAB
     Indication: Secondary progressive multiple sclerosis
     Dosage: ADDITIONAL DATES OF TREATMENT: 25/SEP/2019
     Route: 042
     Dates: start: 20190910
  2. OCREVUS [Suspect]
     Active Substance: OCRELIZUMAB
     Indication: Primary progressive multiple sclerosis
     Dosage: ADDITIONAL DATES OF TREATMENT: 10/APR/2020, 28/APR/2021
     Route: 042
     Dates: start: 20201028
  3. BACLOFEN [Concomitant]
     Active Substance: BACLOFEN
     Indication: Muscle spasms
     Dosage: ONGOING YES
     Route: 048
     Dates: start: 201311
  4. NALTREXONE [Concomitant]
     Active Substance: NALTREXONE
     Dosage: ONGOING YES
     Route: 048
     Dates: start: 201405
  5. CRANBERRY [Concomitant]
     Active Substance: CRANBERRY
     Indication: Urinary incontinence
     Dosage: ONGOING YES
     Route: 048
     Dates: start: 202007
  6. FISH OIL [Concomitant]
     Active Substance: FISH OIL
     Dosage: ONGOING YES
     Route: 048
     Dates: start: 20200714
  7. VITAMIN D3 [Concomitant]
     Active Substance: CHOLECALCIFEROL
     Dosage: ONGOING YES?START DATE UNKNOWN
     Route: 048
  8. METHYLPREDNISOLONE [Concomitant]
     Active Substance: METHYLPREDNISOLONE
     Route: 042
  9. DIPHENHYDRAMINE [Concomitant]
     Active Substance: DIPHENHYDRAMINE
     Route: 042

REACTIONS (5)
  - Breast cancer [Not Recovered/Not Resolved]
  - Hypothyroidism [Not Recovered/Not Resolved]
  - Multiple sclerosis [Unknown]
  - White blood cell count decreased [Recovering/Resolving]
  - Asthenia [Unknown]

NARRATIVE: CASE EVENT DATE: 20200201
